FAERS Safety Report 7825650-1 (Version None)
Quarter: 2011Q4

REPORT INFORMATION
  Report Type: 
  Country: None (occurrence: None)
  Receive Date: 20111019
  Receipt Date: 20111007
  Transmission Date: 20120403
  Serious: Yes (Other)
  Sender: FDA-Public Use
  Company Number: CHPA2011JP12277

PATIENT
  Sex: Female

DRUGS (8)
  1. LOCHOLEST [Suspect]
     Dosage: 20 MG, QD
     Route: 048
     Dates: start: 20060101
  2. ARICEPT [Concomitant]
     Dosage: 5 MG, QD
     Route: 048
     Dates: start: 20100909
  3. URITOS [Concomitant]
     Dosage: 0.2 MG, QD
     Route: 048
     Dates: start: 20080407
  4. RABEPRAZOLE SODIUM [Concomitant]
     Dosage: 10 MG, QD
     Route: 048
     Dates: start: 20060101
  5. BUFFERIN [Concomitant]
     Dosage: 81 MG, QD
     Route: 048
     Dates: start: 20060101
  6. BASEN [Concomitant]
     Dosage: 0.9 MG, QD
     Route: 048
     Dates: start: 20060101
  7. LASIX [Concomitant]
     Dosage: 20 MG, QD
     Route: 048
     Dates: start: 20080407
  8. LAMISIL [Suspect]
     Indication: TINEA PEDIS
     Dosage: UNK, UNK
     Route: 062
     Dates: start: 20110714

REACTIONS (16)
  - BLOOD LACTATE DEHYDROGENASE INCREASED [None]
  - CONCOMITANT DISEASE AGGRAVATED [None]
  - NEUTROPHIL PERCENTAGE INCREASED [None]
  - BLOOD ALKALINE PHOSPHATASE INCREASED [None]
  - RED BLOOD CELL COUNT INCREASED [None]
  - LYMPHOCYTE PERCENTAGE DECREASED [None]
  - ASPARTATE AMINOTRANSFERASE INCREASED [None]
  - ALANINE AMINOTRANSFERASE INCREASED [None]
  - BLOOD CREATININE INCREASED [None]
  - BLOOD BILIRUBIN INCREASED [None]
  - BLOOD POTASSIUM DECREASED [None]
  - BLOOD GLUCOSE INCREASED [None]
  - MONOCYTE PERCENTAGE DECREASED [None]
  - GAMMA-GLUTAMYLTRANSFERASE INCREASED [None]
  - PLATELET COUNT DECREASED [None]
  - HEPATIC FUNCTION ABNORMAL [None]
